FAERS Safety Report 24961662 (Version 2)
Quarter: 2025Q1

REPORT INFORMATION
  Report Type: Spontaneous
  Country: FR (occurrence: FR)
  Receive Date: 20250212
  Receipt Date: 20250219
  Transmission Date: 20250409
  Serious: Yes (Hospitalization)
  Sender: MYLAN
  Company Number: None

PATIENT
  Age: 66 Year
  Sex: Female

DRUGS (3)
  1. FENTANYL [Suspect]
     Active Substance: FENTANYL
     Indication: Arthralgia
     Route: 062
     Dates: start: 20250116, end: 20250121
  2. SKENAN [Suspect]
     Active Substance: MORPHINE SULFATE
     Indication: Arthralgia
     Dosage: 10 MG, BID (SUSTAINED-RELEASE MICROGRANULES IN CAPSULES)
     Route: 048
     Dates: start: 20250116, end: 20250120
  3. MORPHINE SULFATE [Suspect]
     Active Substance: MORPHINE SULFATE
     Indication: Arthralgia
     Dosage: 5 MILLIGRAM, Q4H
     Route: 048
     Dates: start: 20250116, end: 20250120

REACTIONS (3)
  - Somnolence [Recovered/Resolved with Sequelae]
  - Hypotonia [Recovered/Resolved with Sequelae]
  - Bradyphrenia [Recovered/Resolved with Sequelae]

NARRATIVE: CASE EVENT DATE: 20250121
